FAERS Safety Report 7110544-X (Version None)
Quarter: 2010Q4

REPORT INFORMATION
  Report Type: 
  Country: None (occurrence: None)
  Receive Date: 20101118
  Receipt Date: 20101108
  Transmission Date: 20110411
  Serious: Yes (Hospitalization, Other)
  Sender: FDA-Public Use
  Company Number: US-ROCHE-720285

PATIENT
  Sex: Male
  Weight: 74.8 kg

DRUGS (2)
  1. ACCUTANE [Suspect]
     Route: 065
     Dates: start: 19981027, end: 19990209
  2. ACCUTANE [Suspect]
     Route: 065
     Dates: start: 19990209, end: 19990401

REACTIONS (7)
  - BACK PAIN [None]
  - BLOOD CHOLESTEROL INCREASED [None]
  - COLITIS ULCERATIVE [None]
  - CROHN'S DISEASE [None]
  - GASTROINTESTINAL INJURY [None]
  - GOUT [None]
  - INTESTINAL OBSTRUCTION [None]
